FAERS Safety Report 6659842-4 (Version None)
Quarter: 2010Q1

REPORT INFORMATION
  Report Type: 
  Country: None (occurrence: None)
  Receive Date: 20100330
  Receipt Date: 20100330
  Transmission Date: 20100710
  Serious: Yes (Hospitalization)
  Sender: FDA-Public Use
  Company Number: None

PATIENT
  Sex: Male
  Weight: 92.2 kg

DRUGS (1)
  1. CYTARABINE [Suspect]
     Dosage: 39420 MG
     Dates: end: 20090511

REACTIONS (6)
  - FEBRILE NEUTROPENIA [None]
  - PARAINFLUENZAE VIRUS INFECTION [None]
  - PNEUMONIA [None]
  - SINUSITIS [None]
  - VIRAL TEST POSITIVE [None]
  - WHITE BLOOD CELL COUNT DECREASED [None]
